FAERS Safety Report 7001782-5 (Version None)
Quarter: 2010Q3

REPORT INFORMATION
  Report Type: 
  Country: None (occurrence: None)
  Receive Date: 20100920
  Receipt Date: 20070620
  Transmission Date: 20110219
  Serious: No
  Sender: FDA-Public Use
  Company Number: US-ASTRAZENECA-2006UW26065

PATIENT
  Age: 40 Year
  Sex: Male
  Weight: 78 kg

DRUGS (15)
  1. SEROQUEL [Suspect]
     Indication: MENTAL DISORDER
     Route: 048
     Dates: start: 19780101
  2. SEROQUEL [Suspect]
     Route: 048
     Dates: start: 20040101
  3. RISPERDAL [Concomitant]
     Dates: start: 19780101
  4. ZYPREXA [Concomitant]
     Dates: start: 19770101
  5. ZYPREXA [Concomitant]
     Dates: start: 20011004
  6. AMITRIPTYLINE HCL [Concomitant]
     Dates: start: 20011004
  7. DARVOCET-N 100 [Concomitant]
     Dosage: 100, FOUR TIMES A DAY, AS PER REQUIRED
     Dates: start: 20011121
  8. ACIPHEX [Concomitant]
     Dates: start: 20011109
  9. DEPAKOTE [Concomitant]
     Dosage: 500 MG, MORNING  AND TWO AT NIGHT
     Route: 048
     Dates: start: 19990101
  10. CREON [Concomitant]
     Dosage: 10 CAP WITH EACH MEAL THREE TIMES A DAY
     Dates: start: 19990126
  11. ALPRAZOLAM [Concomitant]
     Dates: start: 19980603
  12. WELLBUTRIN [Concomitant]
     Dates: start: 19980603
  13. MAALOX [Concomitant]
     Dates: start: 19980101
  14. ZANTAC [Concomitant]
     Dates: start: 19980603
  15. VICODIN [Concomitant]
     Indication: ABDOMINAL PAIN
     Dosage: ONE,AS NEEDED
     Route: 048
     Dates: start: 19980603

REACTIONS (4)
  - BLOOD CHOLESTEROL INCREASED [None]
  - DIABETES MELLITUS [None]
  - MENTAL DISORDER [None]
  - PAIN IN EXTREMITY [None]
